FAERS Safety Report 22047965 (Version 1)
Quarter: 2023Q1

REPORT INFORMATION
  Report Type: Report from Study
  Country: US (occurrence: US)
  Receive Date: 20230301
  Receipt Date: 20230301
  Transmission Date: 20230417
  Serious: Yes (Hospitalization)
  Sender: FDA-Public Use
  Company Number: US-JNJFOC-20230248549

PATIENT
  Age: 67 Year
  Sex: Female

DRUGS (3)
  1. DARATUMUMAB [Suspect]
     Active Substance: DARATUMUMAB
     Indication: Plasma cell myeloma
     Route: 058
     Dates: start: 20230117, end: 20230213
  2. IBERDOMIDE [Suspect]
     Active Substance: IBERDOMIDE
     Indication: Plasma cell myeloma
     Route: 048
     Dates: start: 20230117, end: 20230213
  3. DEXAMETHASONE [Suspect]
     Active Substance: DEXAMETHASONE
     Indication: Plasma cell myeloma
     Dosage: FREQUENCY 1,8,15 AND 22 OF EACH 28 DAY CYCLE
     Route: 048
     Dates: start: 20230117, end: 20230213

REACTIONS (1)
  - Mental status changes [Recovered/Resolved]

NARRATIVE: CASE EVENT DATE: 20230212
